FAERS Safety Report 21795939 (Version 2)
Quarter: 2023Q1

REPORT INFORMATION
  Report Type: Spontaneous
  Country: NL (occurrence: NL)
  Receive Date: 20221229
  Receipt Date: 20230111
  Transmission Date: 20230418
  Serious: Yes (Hospitalization)
  Sender: FDA-Public Use
  Company Number: NL-TEVA-2022-NL-2840310

PATIENT
  Sex: Male

DRUGS (12)
  1. PREDNISONE [Suspect]
     Active Substance: PREDNISONE
     Indication: Autoinflammatory disease
     Dosage: 10 MILLIGRAM DAILY;
     Route: 065
     Dates: start: 201204, end: 201207
  2. PREDNISOLONE [Suspect]
     Active Substance: PREDNISOLONE
     Indication: Autoinflammatory disease
     Route: 065
     Dates: start: 201110, end: 201202
  3. FLUDARABINE [Suspect]
     Active Substance: FLUDARABINE PHOSPHATE
     Indication: Autoinflammatory disease
     Route: 065
  4. HUMAN IMMUNOGLOBULIN G [Suspect]
     Active Substance: HUMAN IMMUNOGLOBULIN G
     Indication: Autoinflammatory disease
     Dosage: 2 G/KG
     Route: 042
     Dates: start: 201204, end: 201207
  5. INFLIXIMAB [Suspect]
     Active Substance: INFLIXIMAB
     Indication: Autoinflammatory disease
     Route: 065
     Dates: start: 201204, end: 201207
  6. INFLIXIMAB [Suspect]
     Active Substance: INFLIXIMAB
     Route: 065
     Dates: start: 201208
  7. METHYLPREDNISOLONE [Suspect]
     Active Substance: METHYLPREDNISOLONE
     Indication: Autoinflammatory disease
     Route: 042
     Dates: start: 201203
  8. METHYLPREDNISOLONE [Suspect]
     Active Substance: METHYLPREDNISOLONE
     Route: 042
     Dates: start: 201208
  9. RITUXIMAB [Suspect]
     Active Substance: RITUXIMAB
     Indication: Autoinflammatory disease
     Dosage: 2 X 375 MG/M2
     Route: 065
     Dates: start: 201204, end: 201207
  10. RITUXIMAB [Suspect]
     Active Substance: RITUXIMAB
     Dosage: 1 X 375 MG/M2
     Route: 065
     Dates: start: 201212
  11. TREOSULFAN [Suspect]
     Active Substance: TREOSULFAN
     Indication: Autoinflammatory disease
     Route: 065
  12. THYMOCYTE IMMUNE GLOBULIN NOS [Suspect]
     Active Substance: THYMOCYTE IMMUNE GLOBULIN NOS
     Indication: Autoinflammatory disease
     Route: 065

REACTIONS (4)
  - Drug ineffective [Unknown]
  - Failure to thrive [Unknown]
  - Growth disorder [Unknown]
  - Iatrogenic injury [Unknown]
